FAERS Safety Report 8067317-3 (Version None)
Quarter: 2012Q1

REPORT INFORMATION
  Report Type: 
  Country: None (occurrence: None)
  Receive Date: 20120124
  Receipt Date: 20110809
  Transmission Date: 20120608
  Serious: Yes (Hospitalization)
  Sender: FDA-Public Use
  Company Number: JP-GLAXOSMITHKLINE-B0739166A

PATIENT
  Sex: Female
  Weight: 70 kg

DRUGS (13)
  1. LULLAN [Concomitant]
     Indication: DEPRESSION
     Dosage: 32MG PER DAY
     Route: 048
     Dates: start: 20110701, end: 20110720
  2. NITRAZEPAM [Concomitant]
     Dosage: 15MG PER DAY
     Route: 048
     Dates: end: 20110807
  3. MAGNESIUM OXIDE [Concomitant]
     Dosage: 4MG PER DAY
     Route: 048
     Dates: end: 20110807
  4. ZOTEPINE [Concomitant]
     Dosage: 50MG PER DAY
     Route: 048
     Dates: start: 20110720, end: 20110807
  5. LAMICTAL [Suspect]
     Indication: SCHIZOAFFECTIVE DISORDER
     Dosage: 25MG PER DAY
     Route: 048
     Dates: start: 20110704, end: 20110719
  6. BEZAFIBRATE [Concomitant]
     Dosage: 400MG PER DAY
     Route: 048
     Dates: end: 20110807
  7. ZOTEPINE [Concomitant]
     Indication: MANIA
     Dosage: 50MG PER DAY
     Route: 048
     Dates: start: 20110601, end: 20110701
  8. TASMOLIN [Concomitant]
     Indication: EXTRAPYRAMIDAL DISORDER
     Dosage: 3MG PER DAY
     Route: 048
     Dates: start: 20110701, end: 20110807
  9. GOODMIN [Concomitant]
     Dosage: .25MG PER DAY
     Route: 048
     Dates: end: 20110807
  10. LAMICTAL [Suspect]
     Dosage: 50MG PER DAY
     Route: 048
     Dates: start: 20110720, end: 20110802
  11. VALPROATE SODIUM [Concomitant]
     Indication: MANIA
     Dosage: 400MG PER DAY
     Route: 048
     Dates: start: 20110601, end: 20110701
  12. LITHIUM CARBONATE [Suspect]
     Indication: MANIA
     Dosage: 1000MG PER DAY
     Route: 048
     Dates: start: 20110601, end: 20110807
  13. SENNOSIDE [Concomitant]
     Dosage: 24MG PER DAY
     Route: 048
     Dates: end: 20110807

REACTIONS (9)
  - BLOOD LACTATE DEHYDROGENASE INCREASED [None]
  - NEUTROPHIL PERCENTAGE INCREASED [None]
  - SUICIDAL IDEATION [None]
  - URTICARIA [None]
  - PIGMENTATION DISORDER [None]
  - ALANINE AMINOTRANSFERASE INCREASED [None]
  - DEPRESSIVE SYMPTOM [None]
  - ASPARTATE AMINOTRANSFERASE INCREASED [None]
  - GENERALISED ERYTHEMA [None]
